FAERS Safety Report 21163521 (Version 2)
Quarter: 2022Q3

REPORT INFORMATION
  Report Type: Spontaneous
  Country: JP (occurrence: JP)
  Receive Date: 20220802
  Receipt Date: 20220826
  Transmission Date: 20221027
  Serious: Yes (Hospitalization)
  Sender: FDA-Public Use
  Company Number: JP-TEVA-2022-JP-2060119

PATIENT
  Age: 89 Year
  Sex: Female
  Weight: 32.7 kg

DRUGS (5)
  1. ETOPOSIDE [Suspect]
     Active Substance: ETOPOSIDE
     Indication: Diffuse large B-cell lymphoma stage IV
     Dosage: R-CVE THERAPY
     Route: 065
     Dates: start: 20180419
  2. PREDNISOLONE [Suspect]
     Active Substance: PREDNISOLONE
     Indication: Diffuse large B-cell lymphoma stage IV
     Dosage: R-CVE THERAPY
     Route: 065
     Dates: start: 20180419
  3. RITUXIMAB [Suspect]
     Active Substance: RITUXIMAB
     Indication: Diffuse large B-cell lymphoma stage IV
     Dosage: R-CVE THERAPY
     Route: 065
     Dates: start: 20180419
  4. CYCLOPHOSPHAMIDE [Suspect]
     Active Substance: CYCLOPHOSPHAMIDE
     Indication: Diffuse large B-cell lymphoma stage IV
     Dosage: R-CVE THERAPY
     Route: 065
     Dates: start: 20180419
  5. AMLODIPINE [Concomitant]
     Active Substance: AMLODIPINE BESYLATE
     Indication: Hypertension
     Dosage: 2.5 MG
     Route: 065

REACTIONS (2)
  - Hepatitis C [Recovered/Resolved]
  - Hepatitis C RNA positive [Recovered/Resolved]

NARRATIVE: CASE EVENT DATE: 20180101
